FAERS Safety Report 6613285-8 (Version None)
Quarter: 2010Q1

REPORT INFORMATION
  Report Type: 
  Country: None (occurrence: None)
  Receive Date: 20100304
  Receipt Date: 20100218
  Transmission Date: 20100710
  Serious: Yes (Other)
  Sender: FDA-Public Use
  Company Number: PHHY2010US10528

PATIENT
  Sex: Female

DRUGS (9)
  1. RECLAST [Suspect]
     Indication: OSTEOPOROSIS
     Dosage: UNK, UNK
     Dates: start: 20100212, end: 20100212
  2. PRILOSEC [Concomitant]
     Dosage: UNK, UNK
     Route: 065
  3. INDERAL [Concomitant]
     Dosage: UNK, UNK
     Route: 065
  4. VITAMIN D [Concomitant]
     Dosage: UNK, UNK
     Route: 065
  5. CALTRATE [Concomitant]
  6. GLUCOSAMINE [Concomitant]
     Dosage: UNK, UNK
     Route: 065
  7. FISH OIL [Concomitant]
     Dosage: UNK, UNK
     Route: 065
  8. ZINC [Concomitant]
     Dosage: UNK, UNK
     Route: 065
  9. MAGNESIUM [Concomitant]
     Dosage: UNK, UNK
     Route: 066

REACTIONS (11)
  - ASTHENIA [None]
  - BURNING SENSATION [None]
  - CHILLS [None]
  - DIZZINESS [None]
  - HEADACHE [None]
  - PAIN [None]
  - PAIN IN JAW [None]
  - PARAESTHESIA [None]
  - PARAESTHESIA ORAL [None]
  - PRESYNCOPE [None]
  - SHOCK [None]
